FAERS Safety Report 9210750 (Version 2)
Quarter: 2013Q4

REPORT INFORMATION
  Report Type: Spontaneous
  Country: US (occurrence: US)
  Receive Date: 20130404
  Receipt Date: 20131230
  Transmission Date: 20140711
  Serious: Yes (Other)
  Sender: FDA-Public Use
  Company Number: US-BAYER-2013-040346

PATIENT
  Age: 23 Year
  Sex: Female

DRUGS (5)
  1. YAZ [Suspect]
  2. EXCEDRIN IB [Concomitant]
  3. TOPAMAX [Concomitant]
  4. IMITREX [Concomitant]
  5. BROMFENEX [Concomitant]
     Dosage: UNK
     Dates: start: 20080416

REACTIONS (7)
  - Gallbladder injury [None]
  - Cholecystitis chronic [None]
  - Pain [None]
  - Injury [None]
  - Anxiety [None]
  - Anhedonia [None]
  - Quality of life decreased [None]
